FAERS Safety Report 20193124 (Version 3)
Quarter: 2022Q1

REPORT INFORMATION
  Report Type: Spontaneous
  Country: JP (occurrence: None)
  Receive Date: 20211216
  Receipt Date: 20220112
  Transmission Date: 20220423
  Serious: Yes (Other)
  Sender: FDA-Public Use
  Company Number: 2021A875010

PATIENT
  Age: 50 Year
  Sex: Female

DRUGS (8)
  1. QUETIAPINE FUMARATE [Suspect]
     Active Substance: QUETIAPINE FUMARATE
     Indication: Bipolar disorder
     Dosage: 150 MG, ONCE DAILY, TOOK WITH AN EMPTY STOMACH BEFORE BEDTIME
     Route: 048
  2. QUETIAPINE FUMARATE [Suspect]
     Active Substance: QUETIAPINE FUMARATE
     Indication: Bipolar disorder
     Dosage: 150 MG, ONCE DAILY, TOOK WITH AN EMPTY STOMACH BEFORE BEDTIME
     Route: 048
  3. QUETIAPINE FUMARATE [Suspect]
     Active Substance: QUETIAPINE FUMARATE
     Dosage: 150 MG, ONCE DAILY, TOOK BEFORE SLEEP
     Route: 048
     Dates: start: 202112
  4. QUETIAPINE FUMARATE [Suspect]
     Active Substance: QUETIAPINE FUMARATE
     Dosage: 50 MG, ONCE DAILY, TOOK BEFORE SLEEP
     Route: 048
  5. QUETIAPINE FUMARATE [Suspect]
     Active Substance: QUETIAPINE FUMARATE
     Dosage: 150 MG, ONCE DAILY, MEDICATION AFTER SUPPER
     Route: 048
     Dates: start: 202109
  6. QUETIAPINE FUMARATE [Suspect]
     Active Substance: QUETIAPINE FUMARATE
     Dosage: 50 MG, ONCE DAILY, MEDICATION AFTER SUPPER
     Route: 048
     Dates: start: 202109
  7. LATUDA [Concomitant]
     Active Substance: LURASIDONE HYDROCHLORIDE
     Indication: Product used for unknown indication
     Dosage: UNK UNK, UNKNOWN, FREQUENCY, TOOK BEFORE SLEEP
     Route: 048
  8. LATUDA [Concomitant]
     Active Substance: LURASIDONE HYDROCHLORIDE
     Indication: Bipolar disorder
     Dosage: UNK UNK, UNKNOWN, FREQUENCY, TOOK BEFORE SLEEP
     Route: 048

REACTIONS (2)
  - Cardiovascular somatic symptom disorder [Not Recovered/Not Resolved]
  - Product use issue [Unknown]

NARRATIVE: CASE EVENT DATE: 20210901
